FAERS Safety Report 7474505-3 (Version None)
Quarter: 2011Q2

REPORT INFORMATION
  Report Type: 
  Country: None (occurrence: None)
  Receive Date: 20110512
  Receipt Date: 20110506
  Transmission Date: 20111010
  Serious: Yes (Other)
  Sender: FDA-Public Use
  Company Number: ES-BIOGENIDEC-2010BI031002

PATIENT
  Age: 47 Year
  Sex: Female

DRUGS (6)
  1. SERTRALINE [Concomitant]
     Indication: DEPRESSIVE SYMPTOM
  2. TYSABRI [Suspect]
     Route: 042
     Dates: start: 20110505
  3. SERTRALINE [Concomitant]
     Indication: FATIGUE
  4. TYSABRI [Suspect]
     Indication: MULTIPLE SCLEROSIS
     Route: 042
     Dates: start: 20080208, end: 20090602
  5. ZOLPIDEM [Concomitant]
     Indication: INSOMNIA
  6. TIZANIDINE [Concomitant]
     Indication: MUSCLE SPASTICITY

REACTIONS (1)
  - JC VIRUS TEST POSITIVE [None]
